FAERS Safety Report 9767462 (Version 1)
Quarter: 2013Q4

REPORT INFORMATION
  Report Type: Spontaneous
  Country: US (occurrence: US)
  Receive Date: 20131217
  Receipt Date: 20131217
  Transmission Date: 20140711
  Serious: No
  Sender: FDA-Public Use
  Company Number: US-TEVA-447397USA

PATIENT
  Age: 31 Year
  Sex: Female
  Weight: 53.57 kg

DRUGS (1)
  1. PARAGARD 380A [Suspect]
     Indication: CONTRACEPTION
     Route: 015
     Dates: start: 2012, end: 20131104

REACTIONS (4)
  - Discomfort [Recovering/Resolving]
  - Dyspareunia [Not Recovered/Not Resolved]
  - Back pain [Recovered/Resolved]
  - Medical device complication [Unknown]
